FAERS Safety Report 8307349 (Version 2)
Quarter: 2012Q4

REPORT INFORMATION
  Report Type: 
  Country: US (occurrence: US)
  Receive Date: 20111222
  Receipt Date: 20121112
  Transmission Date: 20130627
  Serious: Yes (Hospitalization)
  Sender: FDA-Public Use
  Company Number: US-US-EMD SERONO, INC.-7102271

PATIENT
  Sex: Female
  Weight: 77 kg

DRUGS (9)
  1. REBIF [Suspect]
     Indication: MULTIPLE SCLEROSIS
     Route: 058
     Dates: start: 20040606
  2. REBIF [Suspect]
     Route: 058
  3. CYMBALTA [Concomitant]
     Indication: DEPRESSION
  4. CYMBALTA [Concomitant]
     Indication: PAIN
  5. CRESTOR [Concomitant]
     Indication: BLOOD CHOLESTEROL INCREASED
  6. LEVEMIR [Concomitant]
     Indication: DIABETES MELLITUS
  7. SYNTHROID [Concomitant]
     Indication: HYPOTHYROIDISM
  8. BYSTOLIC [Concomitant]
     Indication: HYPERTENSION
  9. DIOVAN [Concomitant]
     Indication: HYPERTENSION

REACTIONS (4)
  - Renal failure acute [Recovering/Resolving]
  - Dehydration [Recovered/Resolved]
  - Hypergammaglobulinaemia benign monoclonal [Not Recovered/Not Resolved]
  - Helicobacter infection [Recovered/Resolved]
